FAERS Safety Report 26031785 (Version 1)
Quarter: 2025Q4

REPORT INFORMATION
  Report Type: Report from Study
  Country: US (occurrence: US)
  Receive Date: 20251112
  Receipt Date: 20251112
  Transmission Date: 20260118
  Serious: Yes (Other)
  Sender: ALEXION PHARMACEUTICALS
  Company Number: US-AstraZeneca-CH-00988670A

PATIENT
  Sex: Male

DRUGS (1)
  1. OSIMERTINIB [Suspect]
     Active Substance: OSIMERTINIB
     Route: 065

REACTIONS (6)
  - Brain neoplasm [Unknown]
  - Coagulopathy [Unknown]
  - Dyspnoea [Unknown]
  - Fatigue [Unknown]
  - Epistaxis [Unknown]
  - Pulmonary thrombosis [Unknown]
